FAERS Safety Report 16670477 (Version 1)
Quarter: 2019Q3

REPORT INFORMATION
  Report Type: Spontaneous
  Country: GB (occurrence: US)
  Receive Date: 20190805
  Receipt Date: 20190805
  Transmission Date: 20191004
  Serious: No
  Sender: FDA-Public Use
  Company Number: GB-RADIUS HEALTH INC.-2019US001800

PATIENT
  Age: 61 Year
  Sex: Female
  Weight: 50.34 kg

DRUGS (1)
  1. TYMLOS [Suspect]
     Active Substance: ABALOPARATIDE
     Indication: OSTEOPOROSIS POSTMENOPAUSAL
     Dosage: UNK
     Route: 058
     Dates: start: 20180201

REACTIONS (1)
  - Product administered at inappropriate site [Unknown]
